FAERS Safety Report 25268873 (Version 2)
Quarter: 2025Q2

REPORT INFORMATION
  Report Type: Spontaneous
  Country: CA (occurrence: CA)
  Receive Date: 20250505
  Receipt Date: 20250627
  Transmission Date: 20250716
  Serious: Yes (Other)
  Sender: PFIZER
  Company Number: CA-PFIZER INC-202500091502

PATIENT
  Age: 18 Year
  Sex: Male

DRUGS (1)
  1. RUXIENCE [Suspect]
     Active Substance: RITUXIMAB-PVVR
     Indication: Central nervous system inflammation
     Route: 042
     Dates: start: 2024, end: 2024

REACTIONS (3)
  - Immunodeficiency [Not Recovered/Not Resolved]
  - Nasal congestion [Unknown]
  - Off label use [Unknown]
